FAERS Safety Report 5607358-6 (Version None)
Quarter: 2008Q1

REPORT INFORMATION
  Report Type: 
  Country: None (occurrence: None)
  Receive Date: 20080125
  Receipt Date: 20080125
  Transmission Date: 20080703
  Serious: Yes (Other)
  Sender: FDA-Public Use
  Company Number: None

PATIENT
  Sex: Male
  Weight: 86.1834 kg

DRUGS (4)
  1. TYLENOL (CAPLET) [Suspect]
     Indication: ARTHRITIS
     Dosage: 1 EVERY 4 HOURS
     Dates: start: 20070301, end: 20080107
  2. TYLENOL (CAPLET) [Suspect]
     Indication: HEADACHE
     Dosage: 1 EVERY 4 HOURS
     Dates: start: 20070301, end: 20080107
  3. ADVIL [Suspect]
     Indication: ARTHRITIS
     Dosage: 1 DAILY
     Dates: start: 20070301, end: 20080107
  4. ADVIL [Suspect]
     Indication: HEADACHE
     Dosage: 1 DAILY
     Dates: start: 20070301, end: 20080107

REACTIONS (1)
  - GASTROINTESTINAL DISORDER [None]
